FAERS Safety Report 4948751-4 (Version None)
Quarter: 2006Q1

REPORT INFORMATION
  Report Type: 
  Country: None (occurrence: None)
  Receive Date: 20060315
  Receipt Date: 20060223
  Transmission Date: 20060701
  Serious: Yes (Other)
  Sender: FDA-Public Use
  Company Number: ENT-2006-0029

PATIENT
  Age: 64 Year
  Sex: Male

DRUGS (2)
  1. COMTAN [Suspect]
     Indication: PARKINSON'S DISEASE
     Dosage: 1000 MG, 5 IN 1 D, ORAL
     Route: 048
  2. SINEMET [Concomitant]

REACTIONS (1)
  - HALLUCINATION [None]
